FAERS Safety Report 18287550 (Version 1)
Quarter: 2020Q3

REPORT INFORMATION
  Report Type: Spontaneous
  Country: AU (occurrence: AU)
  Receive Date: 20200921
  Receipt Date: 20200921
  Transmission Date: 20201103
  Serious: Yes (Hospitalization, Other)
  Sender: FDA-Public Use
  Company Number: NVSC2020AU255267

PATIENT
  Age: 2 Year
  Sex: Male
  Weight: 14 kg

DRUGS (2)
  1. LORAZEPAM. [Suspect]
     Active Substance: LORAZEPAM
     Indication: PRODUCT USED FOR UNKNOWN INDICATION
     Dosage: 8 MG
     Route: 048
  2. LAMOTRIGINE. [Suspect]
     Active Substance: LAMOTRIGINE
     Indication: PRODUCT USED FOR UNKNOWN INDICATION
     Dosage: 600 MG (43 MG/KG)
     Route: 048

REACTIONS (7)
  - Musculoskeletal stiffness [Unknown]
  - Dyskinesia [Unknown]
  - Nuchal rigidity [Unknown]
  - Eye disorder [Unknown]
  - Somnolence [Not Recovered/Not Resolved]
  - Accidental overdose [Unknown]
  - Seizure [Unknown]
